FAERS Safety Report 16068444 (Version 2)
Quarter: 2019Q1

REPORT INFORMATION
  Report Type: Report from Study
  Country: US (occurrence: US)
  Receive Date: 20190313
  Receipt Date: 20190326
  Transmission Date: 20190418
  Serious: Yes (Hospitalization)
  Sender: FDA-Public Use
  Company Number: US-ACTELION-A-US2018-179948

PATIENT
  Age: 66 Year
  Sex: Male
  Weight: 79.37 kg

DRUGS (4)
  1. GAMA [Concomitant]
     Dosage: UNK, Q1MONTH
  2. UPTRAVI [Suspect]
     Active Substance: SELEXIPAG
     Dosage: 1000 MCG
     Route: 048
  3. OPSUMIT [Suspect]
     Active Substance: MACITENTAN
     Indication: PULMONARY ARTERIAL HYPERTENSION
     Dosage: 10 MG, QD
     Route: 048
     Dates: start: 20180921
  4. UPTRAVI [Suspect]
     Active Substance: SELEXIPAG
     Indication: PULMONARY ARTERIAL HYPERTENSION
     Dosage: UNK
     Route: 048

REACTIONS (14)
  - Oedema peripheral [Recovered/Resolved]
  - Weight increased [Recovered/Resolved]
  - Cough [Unknown]
  - Pyrexia [Unknown]
  - Bacterial infection [Unknown]
  - Nausea [Recovered/Resolved]
  - Tooth infection [Unknown]
  - Peripheral swelling [Unknown]
  - Joint swelling [Unknown]
  - Dyspnoea [Unknown]
  - Fluid retention [Recovering/Resolving]
  - Pneumonia [Unknown]
  - Oral herpes [Unknown]
  - Oedema [Recovered/Resolved]

NARRATIVE: CASE EVENT DATE: 201809
